FAERS Safety Report 5208218-5 (Version None)
Quarter: 2007Q1

REPORT INFORMATION
  Report Type: 
  Country: None (occurrence: None)
  Receive Date: 20070115
  Receipt Date: 20070112
  Transmission Date: 20070707
  Serious: Yes (Other)
  Sender: FDA-Public Use
  Company Number: PT-GLAXOSMITHKLINE-B0454028A

PATIENT
  Sex: Female

DRUGS (2)
  1. ZENTEL [Suspect]
     Indication: PARASITIC INFECTION INTESTINAL
     Dosage: 200MG UNKNOWN
     Route: 048
     Dates: start: 20061227, end: 20061227
  2. UNKNOWN [Concomitant]

REACTIONS (3)
  - ABORTION SPONTANEOUS [None]
  - DRUG EXPOSURE DURING PREGNANCY [None]
  - PREGNANCY [None]
